FAERS Safety Report 9194228 (Version 1)
Quarter: 2013Q1

REPORT INFORMATION
  Report Type: Spontaneous
  Country: US (occurrence: US)
  Receive Date: 20130327
  Receipt Date: 20130327
  Transmission Date: 20140127
  Serious: No
  Sender: FDA-Public Use
  Company Number: US-ASTRAZENECA-2013SE16073

PATIENT
  Age: 16 Year
  Sex: Female
  Weight: 39.9 kg

DRUGS (9)
  1. OMEPRAZOLE [Suspect]
     Indication: GASTROOESOPHAGEAL REFLUX DISEASE
     Dosage: DAILY
     Route: 048
  2. OMEPRAZOLE [Suspect]
     Indication: GASTROOESOPHAGEAL REFLUX DISEASE
     Dosage: DAILY
     Route: 048
     Dates: start: 2013
  3. WELLBUTRIN [Concomitant]
     Indication: DEPRESSION
     Route: 048
     Dates: start: 201206
  4. MELATONIN [Concomitant]
     Indication: SLEEP DISORDER
     Route: 048
     Dates: start: 2013
  5. BENADRYL [Concomitant]
     Indication: SLEEP DISORDER
     Dosage: UNK UNK
  6. EPI-PEN [Concomitant]
     Indication: FOOD ALLERGY
     Dosage: UNK PRN
  7. ALLERGA [Concomitant]
     Indication: MULTIPLE ALLERGIES
     Dosage: UNK UNK
  8. ZOFRAN [Concomitant]
     Indication: NAUSEA
     Dosage: UNK UNK
  9. ALBUTEROL [Concomitant]
     Indication: MULTIPLE ALLERGIES
     Dosage: UNK UNK

REACTIONS (4)
  - Eye pain [Unknown]
  - Head discomfort [Unknown]
  - Headache [Unknown]
  - Migraine [Unknown]
